FAERS Safety Report 5593841-9 (Version None)
Quarter: 2008Q1

REPORT INFORMATION
  Report Type: 
  Country: None (occurrence: None)
  Receive Date: 20080116
  Receipt Date: 20080107
  Transmission Date: 20080703
  Serious: Yes (Other)
  Sender: FDA-Public Use
  Company Number: US-ELI_LILLY_AND_COMPANY-US200801002074

PATIENT
  Age: 50 Year
  Sex: Female

DRUGS (1)
  1. EVISTA [Suspect]
     Dosage: 20 MG, UNK
     Dates: start: 20071215, end: 20071231

REACTIONS (2)
  - BREAST MASS [None]
  - METRORRHAGIA [None]
